FAERS Safety Report 8988948 (Version 1)
Quarter: 2012Q4

REPORT INFORMATION
  Report Type: 
  Country: FR (occurrence: FR)
  Receive Date: 20121228
  Receipt Date: 20121228
  Transmission Date: 20130627
  Serious: Yes (Other)
  Sender: FDA-Public Use
  Company Number: PHHY2012FR115678

PATIENT
  Sex: Female

DRUGS (1)
  1. TOBI PODHALER [Suspect]

REACTIONS (1)
  - Haemoptysis [Unknown]
